FAERS Safety Report 17998613 (Version 1)
Quarter: 2020Q3

REPORT INFORMATION
  Report Type: Spontaneous
  Country: US (occurrence: US)
  Receive Date: 20200709
  Receipt Date: 20200709
  Transmission Date: 20201103
  Serious: No
  Sender: FDA-Public Use
  Company Number: US-GLENMARK PHARMACEUTICALS-2019GMK043791

PATIENT

DRUGS (1)
  1. MOMETASONE FUROATE CREAM USP, 0.1% [Suspect]
     Active Substance: MOMETASONE FUROATE
     Indication: RASH
     Dosage: UNK, OD
     Route: 061
     Dates: start: 20191016

REACTIONS (2)
  - No adverse event [Unknown]
  - Product administered at inappropriate site [Unknown]

NARRATIVE: CASE EVENT DATE: 20191016
